FAERS Safety Report 9374816 (Version 1)
Quarter: 2013Q2

REPORT INFORMATION
  Report Type: Report from Study
  Country: CO (occurrence: CO)
  Receive Date: 20130628
  Receipt Date: 20130628
  Transmission Date: 20140414
  Serious: Yes (Death, Hospitalization)
  Sender: FDA-Public Use
  Company Number: CO-SANOFI-AVENTIS-2013SA062871

PATIENT
  Age: 88 Year
  Sex: Male

DRUGS (9)
  1. LANTUS [Suspect]
     Indication: DIABETES MELLITUS
     Dosage: DOSE:18 UNIT(S)
     Route: 058
     Dates: start: 201301, end: 20130412
  2. APIDRA [Suspect]
     Indication: DIABETES MELLITUS
     Dosage: DOSE:8 UNIT(S)
     Route: 058
     Dates: start: 201301, end: 20130412
  3. LANITOP [Suspect]
     Indication: PRODUCT USED FOR UNKNOWN INDICATION
     Route: 048
     Dates: end: 201301
  4. FUROSEMIDE [Suspect]
     Indication: RENAL FAILURE CHRONIC
     Route: 048
     Dates: end: 20130412
  5. LOSARTAN [Suspect]
     Indication: HYPERTENSION
     Route: 048
     Dates: end: 20130412
  6. METOPROLOL [Concomitant]
     Indication: HYPERTENSION
     Route: 048
     Dates: start: 201301, end: 20130412
  7. ATORVASTATIN [Concomitant]
     Indication: DYSLIPIDAEMIA
     Route: 048
     Dates: end: 20130412
  8. EPAMIN [Concomitant]
     Route: 048
     Dates: end: 20130412
  9. TRAZODONE [Concomitant]
     Route: 048
     Dates: end: 20130412

REACTIONS (3)
  - Renal failure acute [Fatal]
  - Diarrhoea [Unknown]
  - Urinary tract infection [Unknown]
